FAERS Safety Report 8085818-9 (Version None)
Quarter: 2012Q1

REPORT INFORMATION
  Report Type: 
  Country: None (occurrence: None)
  Receive Date: 20120128
  Receipt Date: 20110419
  Transmission Date: 20120608
  Serious: No
  Sender: FDA-Public Use
  Company Number: US-ABBOTT-11P-163-0720169-00

PATIENT
  Sex: Male

DRUGS (3)
  1. HUMIRA [Suspect]
     Indication: PSORIASIS
     Dates: start: 20100801, end: 20101201
  2. TRAMADOL HCL [Concomitant]
     Indication: ARTHRALGIA
     Route: 048
  3. TRAMADOL HCL [Concomitant]
     Indication: PAIN OF SKIN

REACTIONS (7)
  - SKIN HAEMORRHAGE [None]
  - NECK PAIN [None]
  - ARTHRALGIA [None]
  - ARTHRITIS [None]
  - BONE PAIN [None]
  - SCRATCH [None]
  - PAIN IN EXTREMITY [None]
